FAERS Safety Report 19826778 (Version 1)
Quarter: 2021Q3

REPORT INFORMATION
  Report Type: Spontaneous
  Country: US (occurrence: US)
  Receive Date: 20210913
  Receipt Date: 20210913
  Transmission Date: 20211014
  Serious: Yes (Hospitalization)
  Sender: FDA-Public Use
  Company Number: None

PATIENT
  Sex: Female

DRUGS (14)
  1. SIMVASTATIN. [Concomitant]
     Active Substance: SIMVASTATIN
  2. VALSARTAN. [Concomitant]
     Active Substance: VALSARTAN
  3. CITALOPRAM [Concomitant]
     Active Substance: CITALOPRAM HYDROBROMIDE
  4. CYCLOBENZAPR [Concomitant]
     Active Substance: CYCLOBENZAPRINE
  5. FOLIC ACID. [Concomitant]
     Active Substance: FOLIC ACID
  6. METOPROL SUC ER [Concomitant]
     Active Substance: METOPROLOL SUCCINATE
  7. AMOX/K CLAV [Concomitant]
     Active Substance: AMOXICILLIN\CLAVULANATE POTASSIUM
  8. HYDROXYCHLOR [Concomitant]
     Active Substance: HYDROXYCHLOROQUINE
  9. HUMIRA [Suspect]
     Active Substance: ADALIMUMAB
     Indication: RHEUMATOID ARTHRITIS
     Dosage: OTHER DOSE:1 PEN;?
     Route: 048
     Dates: start: 20150515
  10. METHOTREXATE. [Concomitant]
     Active Substance: METHOTREXATE
  11. PREDNSONE [Concomitant]
  12. RISA?BID PROBIO [Concomitant]
  13. VALYCYCLOVIR [Concomitant]
  14. VERAPAMIL [Concomitant]
     Active Substance: VERAPAMIL HYDROCHLORIDE

REACTIONS (1)
  - Therapy interrupted [None]
